FAERS Safety Report 25465673 (Version 1)
Quarter: 2025Q2

REPORT INFORMATION
  Report Type: Spontaneous
  Country: US (occurrence: US)
  Receive Date: 20250623
  Receipt Date: 20250623
  Transmission Date: 20250716
  Serious: Yes (Hospitalization, Other)
  Sender: AMGEN
  Company Number: US-AMGEN-USASP2025117601

PATIENT
  Age: 62 Year
  Sex: Female

DRUGS (6)
  1. BEVACIZUMAB [Suspect]
     Active Substance: BEVACIZUMAB
     Indication: Ovarian epithelial cancer recurrent
     Route: 065
  2. CARBOPLATIN\PACLITAXEL [Concomitant]
     Active Substance: CARBOPLATIN\PACLITAXEL
  3. CARBOPLATIN\PACLITAXEL [Concomitant]
     Active Substance: CARBOPLATIN\PACLITAXEL
  4. NIRAPARIB [Concomitant]
     Active Substance: NIRAPARIB
  5. CYTALUX [Concomitant]
     Active Substance: PAFOLACIANINE SODIUM
  6. DOXORUBICIN [Concomitant]
     Active Substance: DOXORUBICIN

REACTIONS (3)
  - Ovarian epithelial cancer recurrent [Unknown]
  - Stridor [Unknown]
  - Procedural haemorrhage [Unknown]
